FAERS Safety Report 20703218 (Version 7)
Quarter: 2022Q4

REPORT INFORMATION
  Report Type: Report from Study
  Country: ES (occurrence: ES)
  Receive Date: 20220413
  Receipt Date: 20221226
  Transmission Date: 20230113
  Serious: Yes (Other)
  Sender: FDA-Public Use
  Company Number: ES-ABBVIE-22K-144-4354813-00

PATIENT
  Sex: Female
  Weight: 71 kg

DRUGS (6)
  1. CARBIDOPA\LEVODOPA [Suspect]
     Active Substance: CARBIDOPA\LEVODOPA
     Indication: Parkinson^s disease
     Dosage: MORNING (-1.5) TO 14.5, CONTINUOUS 3.5 (-0.4), EXTRA (-0.5) 3ML WITH 3.5 HOUR BLOCK
     Route: 050
     Dates: start: 20170706, end: 20220408
  2. CARBIDOPA\LEVODOPA [Suspect]
     Active Substance: CARBIDOPA\LEVODOPA
     Dosage: DECREASE OF 1ML OF MORNING DOSE (16 ML) AND OF 0.3ML/H OF CONTINUOUS DOSE (4.9 ML)
     Route: 050
     Dates: start: 20220408, end: 202205
  3. CARBIDOPA\LEVODOPA [Suspect]
     Active Substance: CARBIDOPA\LEVODOPA
     Dosage: MORNING (-1.5) TO 14.5, CONTINUOUS 3.5 (-0.4), EXTRA (-0.5) 3ML WITH 3.5 HOUR BLOCK
     Dates: start: 202205, end: 202206
  4. CARBIDOPA\LEVODOPA [Suspect]
     Active Substance: CARBIDOPA\LEVODOPA
     Dosage: MORNING DOSE 13.5ML CONTINUOUS DOSE 4ML/H, EXTRA DOSE 3.5 ML
     Route: 050
     Dates: start: 202205, end: 202206
  5. CARBIDOPA\LEVODOPA [Suspect]
     Active Substance: CARBIDOPA\LEVODOPA
     Dosage: MORNING DOSE 13.5ML CONTINUOUS DOSE 4ML/H, EXTRA DOSE 3.5 ML
     Route: 050
     Dates: start: 202206
  6. CARBIDOPA\LEVODOPA [Suspect]
     Active Substance: CARBIDOPA\LEVODOPA
     Dosage: PUMP DOSES ARE DECREASED
     Route: 050
     Dates: start: 2022

REACTIONS (12)
  - Psychomotor hyperactivity [Recovered/Resolved]
  - Unevaluable event [Unknown]
  - Urinary tract infection [Recovering/Resolving]
  - Neuropsychiatric symptoms [Unknown]
  - Dyskinesia [Recovering/Resolving]
  - Hallucination [Recovered/Resolved]
  - Hallucination [Recovered/Resolved]
  - Disease progression [Unknown]
  - Hallucination [Unknown]
  - Delusion [Not Recovered/Not Resolved]
  - Psychomotor hyperactivity [Unknown]
  - Therapeutic product effect incomplete [Unknown]

NARRATIVE: CASE EVENT DATE: 20220101
